FAERS Safety Report 21232650 (Version 1)
Quarter: 2022Q3

REPORT INFORMATION
  Report Type: Spontaneous
  Country: FR (occurrence: FR)
  Receive Date: 20220819
  Receipt Date: 20220819
  Transmission Date: 20221027
  Serious: Yes (Disabling)
  Sender: FDA-Public Use
  Company Number: None

PATIENT
  Age: 61 Year
  Sex: Male
  Weight: 47 kg

DRUGS (4)
  1. METHOTREXATE (METHOTREXATE SODIUM) [Suspect]
     Active Substance: METHOTREXATE SODIUM
     Indication: Chronic myeloid leukaemia
     Dosage: 10 CYCLES OR 150MG IN TOTAL, 2.5 PER CENT (500 MG/20 ML), UNIT DOSE :15 MG  , FREQUENCY TIME : 1 CYC
     Dates: start: 20210409, end: 20220628
  2. ONCOVIN [Suspect]
     Active Substance: VINCRISTINE SULFATE
     Indication: Chronic myeloid leukaemia
     Dosage: FORM STRENGTH : 1 MG, UNIT DOSE :2 MG  , FREQUENCY TIME : 1 CYCLICAL   , DURATION : 343 DAYS
     Dates: start: 20210415, end: 20220623
  3. CYTARABINE [Suspect]
     Active Substance: CYTARABINE
     Indication: Chronic myeloid leukaemia
     Dosage: 9 CYCLES IN TOTAL I.E. TOTAL DOSE 360MG , FORM STRENGTH : 100 MG/ML, UNIT DOSE : 40 MG , FREQUENCY T
     Dates: start: 20210423, end: 20220628
  4. BLINATUMOMAB [Concomitant]
     Active Substance: BLINATUMOMAB
     Indication: Product used for unknown indication
     Dosage: FORM STRENGTH : 33 UG/ML,

REACTIONS (1)
  - Polyneuropathy [Not Recovered/Not Resolved]

NARRATIVE: CASE EVENT DATE: 20220623
